FAERS Safety Report 8319378-1 (Version None)
Quarter: 2012Q2

REPORT INFORMATION
  Report Type: 
  Country: None (occurrence: None)
  Receive Date: 20120427
  Receipt Date: 20120416
  Transmission Date: 20120825
  Serious: Yes (Other)
  Sender: FDA-Public Use
  Company Number: SG-JNJFOC-20120302740

PATIENT
  Age: 40 Year
  Sex: Male

DRUGS (7)
  1. PSEUDOEPHEDRINE HYDROCHLORIDE [Suspect]
     Route: 065
  2. ZYRTEC-D 12 HOUR [Suspect]
     Route: 065
  3. PSEUDOEPHEDRINE HYDROCHLORIDE [Suspect]
     Indication: INFLUENZA
     Route: 065
     Dates: start: 20111230, end: 20111230
  4. ZYRTEC-D 12 HOUR [Suspect]
     Indication: INFLUENZA
     Route: 065
     Dates: start: 20111230, end: 20111230
  5. LORATADINE [Suspect]
     Indication: INFLUENZA
     Route: 065
     Dates: start: 20111230, end: 20111230
  6. ETORICOXIB [Suspect]
     Indication: PYREXIA
     Route: 048
     Dates: start: 20111230, end: 20111230
  7. ETORICOXIB [Suspect]
     Indication: CHILLS
     Route: 048
     Dates: start: 20111230, end: 20111230

REACTIONS (6)
  - LOCAL SWELLING [None]
  - EYE SWELLING [None]
  - ERYTHEMA [None]
  - NAUSEA [None]
  - ANGIOEDEMA [None]
  - DIZZINESS [None]
